FAERS Safety Report 7873244-4 (Version None)
Quarter: 2011Q4

REPORT INFORMATION
  Report Type: 
  Country: None (occurrence: None)
  Receive Date: 20111030
  Receipt Date: 20110502
  Transmission Date: 20120403
  Serious: Yes (Other)
  Sender: FDA-Public Use
  Company Number: US-AMGEN-USASP2011019644

PATIENT
  Age: 57 Year
  Sex: Female

DRUGS (2)
  1. ENBREL [Suspect]
     Indication: RHEUMATOID ARTHRITIS
     Dosage: 50 MG, QWK
     Route: 058
     Dates: start: 20030120
  2. METHOTREXATE [Concomitant]
     Dosage: UNK
     Dates: start: 20000101

REACTIONS (11)
  - RHEUMATOID ARTHRITIS [None]
  - INFLUENZA LIKE ILLNESS [None]
  - NAUSEA [None]
  - FATIGUE [None]
  - STAPHYLOCOCCAL INFECTION [None]
  - UPPER RESPIRATORY TRACT INFECTION [None]
  - INJECTION SITE PAIN [None]
  - INJECTION SITE HAEMORRHAGE [None]
  - SINUSITIS [None]
  - DIARRHOEA [None]
  - BRONCHIAL HYPERREACTIVITY [None]
